FAERS Safety Report 12455124 (Version 1)
Quarter: 2016Q2

REPORT INFORMATION
  Report Type: Spontaneous
  Country: IT (occurrence: IT)
  Receive Date: 20160610
  Receipt Date: 20160610
  Transmission Date: 20160815
  Serious: Yes (Hospitalization)
  Sender: FDA-Public Use
  Company Number: IT-WATSON-2016-11437

PATIENT
  Age: 70 Year
  Sex: Male

DRUGS (1)
  1. ZOLPIDEM [Suspect]
     Active Substance: ZOLPIDEM\ZOLPIDEM TARTRATE
     Indication: INSOMNIA
     Dosage: 8 GTT DROP(S), DAILY
     Route: 048
     Dates: start: 20160130, end: 20160201

REACTIONS (1)
  - Hypercapnia [Recovering/Resolving]

NARRATIVE: CASE EVENT DATE: 20160202
